FAERS Safety Report 4424825-1 (Version None)
Quarter: 2004Q3

REPORT INFORMATION
  Report Type: 
  Country: None (occurrence: None)
  Receive Date: 20040719
  Receipt Date: 20030717
  Transmission Date: 20050211
  Serious: Yes (Hospitalization)
  Sender: FDA-Public Use
  Company Number: 175995

PATIENT
  Age: 34 Year
  Sex: Female
  Weight: 84.8226 kg

DRUGS (6)
  1. AVONEX [Suspect]
     Indication: MULTIPLE SCLEROSIS
     Dosage: 30 MCG QW IM
     Route: 030
     Dates: start: 19960101, end: 19990101
  2. BACLOFEN [Concomitant]
  3. VALIUM [Concomitant]
  4. ALLERGY MEDICATIONS (NOS) [Concomitant]
  5. NEURONTIN [Concomitant]
  6. OXYCODONE HCL [Concomitant]

REACTIONS (7)
  - BLOOD LEAD INCREASED [None]
  - BLOOD MERCURY ABNORMAL [None]
  - LEAD URINE INCREASED [None]
  - MULTIPLE SCLEROSIS RELAPSE [None]
  - MUSCLE SPASMS [None]
  - NEURALGIA [None]
  - URINE MERCURY ABNORMAL [None]
